FAERS Safety Report 4898863-9 (Version None)
Quarter: 2006Q1

REPORT INFORMATION
  Report Type: 
  Country: None (occurrence: None)
  Receive Date: 20060127
  Receipt Date: 20060113
  Transmission Date: 20060701
  Serious: Yes (Hospitalization)
  Sender: FDA-Public Use
  Company Number: 2006BI000765

PATIENT
  Age: 52 Year
  Sex: Female
  Weight: 58.0604 kg

DRUGS (2)
  1. AVONEX [Suspect]
     Indication: MULTIPLE SCLEROSIS
     Dosage: 30 UG; QW; IM
     Route: 030
     Dates: start: 20001201, end: 20030101
  2. AVONEX [Suspect]
     Indication: MULTIPLE SCLEROSIS
     Dosage: 30 UG; QW; IM
     Route: 030
     Dates: start: 20030101

REACTIONS (5)
  - BACK PAIN [None]
  - HEADACHE [None]
  - INTRACRANIAL HYPOTENSION [None]
  - POST PROCEDURAL HEADACHE [None]
  - POST PROCEDURAL VOMITING [None]
